FAERS Safety Report 4753182-6 (Version None)
Quarter: 2005Q3

REPORT INFORMATION
  Report Type: 
  Country: None (occurrence: None)
  Receive Date: 20050824
  Receipt Date: 20050812
  Transmission Date: 20060218
  Serious: Yes (Other)
  Sender: FDA-Public Use
  Company Number: 2005115701

PATIENT
  Age: 35 Year
  Sex: Female
  Weight: 67.1324 kg

DRUGS (5)
  1. DEPO-PROVERA [Suspect]
     Indication: CONTRACEPTION
     Dosage: CYCLIC INTERVAL: EVERY 3 MONTHS) INTRAMUSCULAR
     Route: 030
     Dates: start: 19960101, end: 20050101
  2. PRILOSEC [Concomitant]
  3. IMIPRAMINE [Concomitant]
  4. ATENOLOL [Concomitant]
  5. DOXYCYCLINE [Concomitant]

REACTIONS (9)
  - ADVERSE EVENT [None]
  - ALOPECIA [None]
  - AMENORRHOEA [None]
  - ANXIETY [None]
  - ARTHRALGIA [None]
  - CERVIX CARCINOMA [None]
  - CONDITION AGGRAVATED [None]
  - DEPRESSION [None]
  - THYROID FUNCTION TEST ABNORMAL [None]
